FAERS Safety Report 9252679 (Version 1)
Quarter: 2013Q2

REPORT INFORMATION
  Report Type: Spontaneous
  Country: FR (occurrence: FR)
  Receive Date: 20130424
  Receipt Date: 20130424
  Transmission Date: 20140414
  Serious: Yes (Hospitalization)
  Sender: FDA-Public Use
  Company Number: FR-GLAXOSMITHKLINE-B0884512A

PATIENT
  Age: 36 Year
  Sex: Female

DRUGS (4)
  1. LAMICTAL [Suspect]
     Indication: EPILEPSY
     Dosage: 50MG TWICE PER DAY
     Route: 065
     Dates: start: 201208
  2. KEPPRA [Concomitant]
     Indication: EPILEPSY
     Dosage: 1G TWICE PER DAY
     Route: 065
     Dates: start: 2010
  3. SIFROL [Concomitant]
     Indication: RESTLESS LEGS SYNDROME
     Route: 065
  4. AERIUS [Concomitant]
     Indication: PRODUCT USED FOR UNKNOWN INDICATION
     Route: 065

REACTIONS (2)
  - Urticaria [Unknown]
  - Incorrect dose administered [Unknown]
